FAERS Safety Report 6465659-6 (Version None)
Quarter: 2009Q4

REPORT INFORMATION
  Report Type: 
  Country: None (occurrence: None)
  Receive Date: 20091124
  Receipt Date: 20091109
  Transmission Date: 20100525
  Serious: Yes (Death, Other)
  Sender: FDA-Public Use
  Company Number: AUR-APL-2009-01234

PATIENT
  Age: 72 Year
  Sex: Male

DRUGS (4)
  1. SERTRALINE HCL [Suspect]
     Indication: DEPRESSION
     Dosage: 50MG - DAILY -
  2. AMANTADINE [Suspect]
     Indication: PARKINSON'S DISEASE
     Dosage: 100MG - BID -
  3. BACLOFEN [Suspect]
     Dosage: 5MG - BID -
  4. BENSERAZIDE/LEVODOPA [Suspect]
     Indication: PARKINSON'S DISEASE
     Dosage: 12.5MG/50MG - BID -

REACTIONS (12)
  - BLOOD PRESSURE DECREASED [None]
  - CEREBROVASCULAR ACCIDENT [None]
  - CONDITION AGGRAVATED [None]
  - DEPRESSION [None]
  - FALL [None]
  - FATIGUE [None]
  - HICCUPS [None]
  - HYPONATRAEMIA [None]
  - LOCALISED INTRAABDOMINAL FLUID COLLECTION [None]
  - ORTHOSTATIC HYPOTENSION [None]
  - PROCEDURAL COMPLICATION [None]
  - SLEEP DISORDER [None]
